FAERS Safety Report 8604931-8 (Version None)
Quarter: 2012Q3

REPORT INFORMATION
  Report Type: 
  Country: None (occurrence: None)
  Receive Date: 20120820
  Receipt Date: 20120808
  Transmission Date: 20120928
  Serious: Yes (Other)
  Sender: FDA-Public Use
  Company Number: ZA-NOVOPROD-342777

PATIENT
  Age: 37 Year
  Sex: Female
  Weight: 80 kg

DRUGS (2)
  1. LEVEMIR [Suspect]
     Indication: GESTATIONAL DIABETES
     Dosage: 8 U, QD
     Route: 065
     Dates: start: 20120104, end: 20120125
  2. NOVORAPID FLEXPEN [Suspect]
     Indication: GESTATIONAL DIABETES
     Dosage: 18 U, QD
     Route: 065
     Dates: start: 20120104, end: 20120125

REACTIONS (2)
  - MATERNAL EXPOSURE DURING PREGNANCY [None]
  - FOETAL DISTRESS SYNDROME [None]
